FAERS Safety Report 6191081-6 (Version None)
Quarter: 2009Q2

REPORT INFORMATION
  Report Type: 
  Country: None (occurrence: None)
  Receive Date: 20090513
  Receipt Date: 20090513
  Transmission Date: 20091009
  Serious: Yes (Death)
  Sender: FDA-Public Use
  Company Number: None

PATIENT
  Age: 25 Day
  Sex: Male
  Weight: 0.92 kg

DRUGS (2)
  1. CALCIUM GLUCONATE [Suspect]
     Dosage: 200MG ONETIME IV
     Route: 042
     Dates: start: 20090211, end: 20090211
  2. CALCIUM GLUCONATE [Suspect]

REACTIONS (3)
  - DRUG LABEL CONFUSION [None]
  - INCORRECT DOSE ADMINISTERED [None]
  - MEDICATION ERROR [None]
